FAERS Safety Report 10924575 (Version 2)
Quarter: 2015Q2

REPORT INFORMATION
  Report Type: Spontaneous
  Country: US (occurrence: US)
  Receive Date: 20150318
  Receipt Date: 20150524
  Transmission Date: 20150821
  Serious: No
  Sender: FDA-Public Use
  Company Number: US-JNJFOC-20121007669

PATIENT
  Age: 49 Year
  Sex: Male

DRUGS (2)
  1. NIZORAL A-D [Suspect]
     Active Substance: KETOCONAZOLE
     Route: 065
  2. NIZORAL A-D [Suspect]
     Active Substance: KETOCONAZOLE
     Indication: ALOPECIA
     Dosage: QUARTER SIZE AMOUNT
     Route: 065
     Dates: start: 20120601

REACTIONS (4)
  - Therapeutic response unexpected [Unknown]
  - Intentional product misuse [Unknown]
  - Inappropriate schedule of drug administration [Unknown]
  - Product use issue [Unknown]

NARRATIVE: CASE EVENT DATE: 20120601
